FAERS Safety Report 6701420-2 (Version None)
Quarter: 2010Q2

REPORT INFORMATION
  Report Type: 
  Country: None (occurrence: None)
  Receive Date: 20100429
  Receipt Date: 20100416
  Transmission Date: 20101027
  Serious: Yes (Hospitalization)
  Sender: FDA-Public Use
  Company Number: FR-RANBAXY-2010RR-31173

PATIENT
  Age: 46 Year
  Sex: Female
  Weight: 69 kg

DRUGS (2)
  1. PARACETAMOL [Suspect]
     Indication: OSTEOARTHRITIS
     Dosage: 32 G, UNK
     Route: 048
  2. CODEINE SULFATE [Concomitant]
     Indication: OSTEOARTHRITIS

REACTIONS (3)
  - HEPATIC FAILURE [None]
  - OVERDOSE [None]
  - RENAL FAILURE [None]
